FAERS Safety Report 24322863 (Version 1)
Quarter: 2024Q3

REPORT INFORMATION
  Report Type: Spontaneous
  Country: US (occurrence: US)
  Receive Date: 20240916
  Receipt Date: 20240916
  Transmission Date: 20241016
  Serious: No
  Sender: TAKEDA
  Company Number: US-TAKEDA-2024TUS091393

PATIENT
  Age: 59 Year
  Sex: Female

DRUGS (1)
  1. ENTYVIO [Suspect]
     Active Substance: VEDOLIZUMAB
     Indication: Colitis ulcerative
     Dosage: 300 MILLIGRAM
     Route: 042
     Dates: start: 202306, end: 202406

REACTIONS (2)
  - Rash [Unknown]
  - Oropharyngeal pain [Unknown]
